FAERS Safety Report 15606774 (Version 1)
Quarter: 2018Q4

REPORT INFORMATION
  Report Type: Spontaneous
  Country: US (occurrence: US)
  Receive Date: 20181111
  Receipt Date: 20181111
  Transmission Date: 20190205
  Serious: Yes (Life-Threatening)
  Sender: FDA-Public Use
  Company Number: None

PATIENT
  Age: 61 Year
  Sex: Female
  Weight: 58.95 kg

DRUGS (5)
  1. ZANTAC [Suspect]
     Active Substance: RANITIDINE HYDROCHLORIDE
     Indication: DYSPEPSIA
     Dosage: ?          QUANTITY:40 TABLET(S);?
     Route: 048
     Dates: start: 20181110, end: 20181110
  2. SMARTY PANTS WOMEN^S COMPLETE VITAMINS [Concomitant]
  3. COLLAGEN POWDER [Concomitant]
  4. MACA ROOT [Concomitant]
  5. PLANT BASED PROTEIN POWDER [Concomitant]

REACTIONS (4)
  - Cough [None]
  - Anaphylactic reaction [None]
  - Secretion discharge [None]
  - Pharyngeal oedema [None]

NARRATIVE: CASE EVENT DATE: 20181110
